FAERS Safety Report 12611642 (Version 1)
Quarter: 2016Q3

REPORT INFORMATION
  Report Type: Spontaneous
  Country: US (occurrence: US)
  Receive Date: 20160801
  Receipt Date: 20160801
  Transmission Date: 20161109
  Serious: Yes (Other)
  Sender: FDA-Public Use
  Company Number: US-TAKEDA-TPA2012A09038

PATIENT

DRUGS (1)
  1. ACTOPLUS MET XR [Suspect]
     Active Substance: METFORMIN HYDROCHLORIDE\PIOGLITAZONE HYDROCHLORIDE
     Indication: TYPE 2 DIABETES MELLITUS
     Dosage: UNK UNK, TID
     Route: 048

REACTIONS (4)
  - Micturition urgency [Unknown]
  - Chromaturia [Unknown]
  - Bladder cancer [Unknown]
  - Pollakiuria [Unknown]
